FAERS Safety Report 7694481-8 (Version None)
Quarter: 2011Q3

REPORT INFORMATION
  Report Type: 
  Country: None (occurrence: None)
  Receive Date: 20110819
  Receipt Date: 20110811
  Transmission Date: 20111222
  Serious: Yes (Life-Threatening, Hospitalization, Other)
  Sender: FDA-Public Use
  Company Number: PHHY2011US49780

PATIENT
  Sex: Male

DRUGS (2)
  1. CHEMOTHERAPEUTICS NOS [Concomitant]
     Indication: MYELODYSPLASTIC SYNDROME
  2. EXJADE [Suspect]
     Dosage: 500 MG, BID
     Route: 048

REACTIONS (10)
  - DYSPNOEA [None]
  - BLOOD CREATININE INCREASED [None]
  - ACUTE RESPIRATORY FAILURE [None]
  - PNEUMONIA [None]
  - COUGH [None]
  - ACUTE RESPIRATORY DISTRESS SYNDROME [None]
  - PULMONARY OEDEMA [None]
  - PANCYTOPENIA [None]
  - NEUTROPENIA [None]
  - PYREXIA [None]
